FAERS Safety Report 15451257 (Version 8)
Quarter: 2019Q1

REPORT INFORMATION
  Report Type: Report from Study
  Country: EC (occurrence: EC)
  Receive Date: 20181001
  Receipt Date: 20190109
  Transmission Date: 20190417
  Serious: Yes (Death, Life-Threatening, Hospitalization, Other)
  Sender: FDA-Public Use
  Company Number: PHHY2018EC108955

PATIENT
  Age: 49 Year
  Sex: Male
  Weight: 77 kg

DRUGS (2)
  1. GLIVEC [Suspect]
     Active Substance: IMATINIB MESYLATE
     Indication: CHRONIC MYELOID LEUKAEMIA
     Dosage: 400 MG, QD
     Route: 048
     Dates: start: 20140802
  2. GLIVEC [Suspect]
     Active Substance: IMATINIB MESYLATE
     Dosage: 400 MG, QD
     Route: 048

REACTIONS (12)
  - Multiple organ dysfunction syndrome [Fatal]
  - Duodenal ulcer perforation [Recovered/Resolved]
  - Duodenal ulcer [Unknown]
  - Hepatic pain [Recovering/Resolving]
  - Terminal state [Unknown]
  - Haemorrhage [Recovering/Resolving]
  - Renal pain [Recovered/Resolved]
  - Chills [Recovered/Resolved]
  - Hepatic cirrhosis [Recovering/Resolving]
  - Pyrexia [Recovered/Resolved]
  - Abdominal distension [Recovering/Resolving]
  - Pharyngitis [Recovering/Resolving]

NARRATIVE: CASE EVENT DATE: 20180828
